FAERS Safety Report 22087112 (Version 2)
Quarter: 2023Q2

REPORT INFORMATION
  Report Type: Spontaneous
  Country: AU (occurrence: AU)
  Receive Date: 20230313
  Receipt Date: 20230413
  Transmission Date: 20230721
  Serious: Yes (Other)
  Sender: FDA-Public Use
  Company Number: US-ALXN-A202302883

PATIENT
  Age: 55 Year
  Sex: Female

DRUGS (7)
  1. SOLIRIS [Suspect]
     Active Substance: ECULIZUMAB
     Indication: Immunosuppressant drug therapy
     Dosage: UNK
     Route: 065
  2. THYMOCYTE IMMUNE GLOBULIN NOS [Concomitant]
     Active Substance: THYMOCYTE IMMUNE GLOBULIN NOS
     Indication: Immunosuppressant drug therapy
     Dosage: UNK
     Route: 065
  3. EVEROLIMUS [Concomitant]
     Active Substance: EVEROLIMUS
     Indication: Product used for unknown indication
     Dosage: UNK
     Route: 065
  4. HUMAN IMMUNOGLOBULIN G [Concomitant]
     Active Substance: HUMAN IMMUNOGLOBULIN G
     Indication: Immunosuppressant drug therapy
     Dosage: UNK
     Route: 065
  5. MYCOPHENOLATE MOFETIL [Concomitant]
     Active Substance: MYCOPHENOLATE MOFETIL
     Indication: Immunosuppressant drug therapy
     Dosage: UNK
     Route: 065
  6. PREDNISOLONE [Concomitant]
     Active Substance: PREDNISOLONE
     Indication: Immunosuppressant drug therapy
     Dosage: UNK
     Route: 065
  7. TACROLIMUS [Concomitant]
     Active Substance: TACROLIMUS
     Indication: Immunosuppressant drug therapy
     Dosage: UNK
     Route: 065

REACTIONS (3)
  - Ventricular tachycardia [Recovered/Resolved]
  - Heart transplant rejection [Recovered/Resolved]
  - Off label use [Unknown]
